FAERS Safety Report 6968674-9 (Version None)
Quarter: 2010Q3

REPORT INFORMATION
  Report Type: 
  Country: None (occurrence: None)
  Receive Date: 20100907
  Receipt Date: 20100827
  Transmission Date: 20110219
  Serious: Yes (Hospitalization)
  Sender: FDA-Public Use
  Company Number: NL-AMGEN-QUU415359

PATIENT
  Sex: Female

DRUGS (8)
  1. NEULASTA [Suspect]
     Indication: CHEMOTHERAPY
     Route: 058
     Dates: start: 20100430, end: 20100710
  2. UNSPECIFIED ANTIBIOTIC [Concomitant]
  3. EPIRUBICIN [Concomitant]
  4. FLUOROURACIL [Concomitant]
  5. CYCLOPHOSPHAMIDE [Concomitant]
  6. METOCLOPRAMIDE [Concomitant]
  7. DEXAMETHASONE [Concomitant]
  8. ONDANSETRON [Concomitant]

REACTIONS (8)
  - BLOOD COUNT ABNORMAL [None]
  - CONVULSION [None]
  - DYSPHAGIA [None]
  - HYPOTENSION [None]
  - OROPHARYNGEAL BLISTERING [None]
  - OROPHARYNGEAL PAIN [None]
  - PYREXIA [None]
  - SWOLLEN TONGUE [None]
